FAERS Safety Report 12554160 (Version 3)
Quarter: 2016Q3

REPORT INFORMATION
  Report Type: Spontaneous
  Country: NL (occurrence: NL)
  Receive Date: 20160713
  Receipt Date: 20160818
  Transmission Date: 20161109
  Serious: Yes (Hospitalization)
  Sender: FDA-Public Use
  Company Number: NL-TEVA-674335ACC

PATIENT
  Age: 89 Year
  Sex: Male
  Weight: 70 kg

DRUGS (2)
  1. HYDROCHLOROTHIAZIDE. [Suspect]
     Active Substance: HYDROCHLOROTHIAZIDE
     Indication: HYPERTENSION
     Dosage: 1 DOSAGE FORMS DAILY; 1 TIME PER DAY 1 PIECE
     Route: 048
     Dates: start: 20160601, end: 20160617
  2. METOPROLOL TABLET MGA  50MG (SUCCINAAT) [Concomitant]
     Dosage: 50 MILLIGRAM DAILY; 1 TIME PER DAY 1 PIECE
     Route: 048
     Dates: start: 2003

REACTIONS (1)
  - Pemphigoid [Not Recovered/Not Resolved]

NARRATIVE: CASE EVENT DATE: 20160617
